FAERS Safety Report 5896243-0 (Version None)
Quarter: 2008Q3

REPORT INFORMATION
  Report Type: 
  Country: None (occurrence: None)
  Receive Date: 20080924
  Receipt Date: 20080714
  Transmission Date: 20090109
  Serious: Yes (Death, Life-Threatening, Hospitalization, Other)
  Sender: FDA-Public Use
  Company Number: CO-PFIZER INC-2008059968

PATIENT
  Sex: Female

DRUGS (1)
  1. NEURONTIN [Suspect]
     Indication: PAIN IN EXTREMITY
     Route: 048

REACTIONS (3)
  - DEATH [None]
  - INFARCTION [None]
  - THROMBOSIS [None]
